FAERS Safety Report 14420065 (Version 1)
Quarter: 2018Q1

REPORT INFORMATION
  Report Type: Spontaneous
  Country: US (occurrence: US)
  Receive Date: 20180122
  Receipt Date: 20180122
  Transmission Date: 20180509
  Serious: No
  Sender: FDA-Public Use
  Company Number: US-ROCHE-1882426

PATIENT
  Age: 64 Year
  Sex: Female

DRUGS (1)
  1. RITUXAN [Suspect]
     Active Substance: RITUXIMAB
     Indication: RHEUMATOID ARTHRITIS
     Dosage: 10MG/ML (DAY 1,15)
     Route: 042
     Dates: start: 20161115, end: 20161130

REACTIONS (2)
  - Drug ineffective [Unknown]
  - Throat tightness [Unknown]

NARRATIVE: CASE EVENT DATE: 20161130
